FAERS Safety Report 5717561-2 (Version None)
Quarter: 2008Q2

REPORT INFORMATION
  Report Type: 
  Country: None (occurrence: None)
  Receive Date: 20080425
  Receipt Date: 20080410
  Transmission Date: 20081010
  Serious: Yes (Other)
  Sender: FDA-Public Use
  Company Number: US-BAUSCH-2008BL001377

PATIENT
  Age: 61 Year
  Sex: Female

DRUGS (1)
  1. FLUOCINOLONE ACETONIDE [Suspect]
     Indication: UVEITIS
     Route: 031
     Dates: start: 20061010

REACTIONS (6)
  - ANTERIOR CHAMBER CELL [None]
  - ANTERIOR CHAMBER FLARE [None]
  - CORNEAL DISORDER [None]
  - CORNEAL TRANSPLANT [None]
  - KERATOCONUS [None]
  - MACULAR OEDEMA [None]
